FAERS Safety Report 6765721-4 (Version None)
Quarter: 2010Q2

REPORT INFORMATION
  Report Type: 
  Country: None (occurrence: None)
  Receive Date: 20100611
  Receipt Date: 20100607
  Transmission Date: 20101027
  Serious: Yes (Life-Threatening, Hospitalization)
  Sender: FDA-Public Use
  Company Number: DE-ASTRAZENECA-2010SE26381

PATIENT
  Age: 71 Year
  Sex: Female
  Weight: 80 kg

DRUGS (12)
  1. ATACAND [Interacting]
     Indication: HYPERTENSION
     Route: 048
     Dates: start: 20040101, end: 20080828
  2. ENALAPRIL [Interacting]
     Indication: HYPERTENSION
     Route: 048
     Dates: start: 20000101, end: 20080826
  3. SPIRONOLACTONE [Suspect]
     Indication: HYPERTENSION
     Route: 048
     Dates: start: 20060101, end: 20080826
  4. ASPIRIN [Concomitant]
     Indication: CORONARY ARTERY DISEASE
     Route: 048
     Dates: start: 20020101, end: 20080826
  5. BISOPROLOL CT [Concomitant]
     Indication: HYPERTENSION
     Route: 048
     Dates: start: 20020101
  6. FUROSEMIDE [Concomitant]
     Indication: HYPERTENSION
     Dosage: DAILY.
     Route: 048
     Dates: start: 19960101
  7. NOVORAPID [Concomitant]
     Indication: TYPE 2 DIABETES MELLITUS
     Dosage: DOSIS/APPLIKATION: 26/22/24 IU, THREE TIMES A DAY.
     Route: 058
     Dates: start: 19940101
  8. SIMVASTATIN [Concomitant]
     Indication: DYSLIPIDAEMIA
     Route: 048
     Dates: start: 19960101
  9. ISDN ^STADA^ [Concomitant]
     Indication: CORONARY ARTERY DISEASE
     Route: 048
     Dates: start: 19960101, end: 20080826
  10. PALLADONE [Concomitant]
     Indication: PAIN
     Route: 048
  11. LORAZEPAM [Concomitant]
     Indication: SLEEP DISORDER
     Route: 048
     Dates: start: 20070101
  12. LANTUS [Concomitant]
     Indication: TYPE 2 DIABETES MELLITUS
     Route: 058
     Dates: start: 19940101

REACTIONS (2)
  - DRUG INTERACTION [None]
  - HYPERKALAEMIA [None]
